FAERS Safety Report 16674799 (Version 1)
Quarter: 2019Q3

REPORT INFORMATION
  Report Type: Other
  Country: CN (occurrence: CN)
  Receive Date: 20190806
  Receipt Date: 20190806
  Transmission Date: 20191004
  Serious: Yes (Other)
  Sender: FDA-Public Use
  Company Number: CN-AGG-07-2019-1965

PATIENT

DRUGS (2)
  1. ADENOSINE. [Concomitant]
     Active Substance: ADENOSINE
     Dosage: ADMINISTERED INTO THE MEDIAN CUBITAL VEIN
     Route: 042
  2. AGGRASTAT [Suspect]
     Active Substance: TIROFIBAN HYDROCHLORIDE
     Indication: ANTIPLATELET THERAPY
     Dosage: WEIGHT ADJUSTED LOADING DOSE THROUGH PERIPHERAL VEIN
     Route: 042

REACTIONS (1)
  - Cardiac failure [Unknown]
